FAERS Safety Report 19001481 (Version 1)
Quarter: 2021Q1

REPORT INFORMATION
  Report Type: Spontaneous
  Country: US (occurrence: US)
  Receive Date: 20210311
  Receipt Date: 20210311
  Transmission Date: 20210420
  Serious: Yes (Life-Threatening, Hospitalization)
  Sender: FDA-Public Use
  Company Number: None

PATIENT
  Age: 23 Year
  Sex: Female

DRUGS (1)
  1. AVONEX PEN [Suspect]
     Active Substance: INTERFERON BETA-1A
     Dosage: ?          OTHER FREQUENCY:EVERY 7 DAYS;?
     Route: 030

REACTIONS (7)
  - Headache [None]
  - Seizure [None]
  - Loss of consciousness [None]
  - Dizziness [None]
  - Cerebrovascular accident [None]
  - Speech disorder [None]
  - Pain [None]

NARRATIVE: CASE EVENT DATE: 20210310
